FAERS Safety Report 19657138 (Version 5)
Quarter: 2022Q1

REPORT INFORMATION
  Report Type: Spontaneous
  Country: US (occurrence: US)
  Receive Date: 20210804
  Receipt Date: 20220307
  Transmission Date: 20220423
  Serious: Yes (Other)
  Sender: FDA-Public Use
  Company Number: US-JNJFOC-20210766008

PATIENT
  Age: 52 Year
  Sex: Female

DRUGS (59)
  1. ELMIRON [Suspect]
     Active Substance: PENTOSAN POLYSULFATE SODIUM
     Indication: Cystitis interstitial
     Route: 048
     Dates: start: 2005, end: 20210205
  2. ALAVERT ALLERGY [Concomitant]
     Active Substance: LORATADINE
     Indication: Multiple allergies
     Dates: start: 20170811
  3. BENZONATATE [Concomitant]
     Active Substance: BENZONATATE
     Indication: Cough
     Dates: start: 20110816
  4. ACETAMINOPHEN\BUTALBITAL\CAFFEINE [Concomitant]
     Active Substance: ACETAMINOPHEN\BUTALBITAL\CAFFEINE
     Indication: Sinus headache
     Dosage: 50-350 40 TAB
     Route: 048
     Dates: start: 20041001, end: 2010
  5. CELEBREX [Concomitant]
     Active Substance: CELECOXIB
     Indication: Fibromyalgia
     Dates: start: 1998
  6. FLEXERIL [Concomitant]
     Active Substance: CYCLOBENZAPRINE HYDROCHLORIDE
     Indication: Fibromyalgia
     Dates: start: 20110110
  7. CYMBALTA [Concomitant]
     Active Substance: DULOXETINE HYDROCHLORIDE
     Indication: Neuralgia
     Dates: start: 20101028
  8. CYMBALTA [Concomitant]
     Active Substance: DULOXETINE HYDROCHLORIDE
     Indication: Fibromyalgia
  9. DICYCLOMINE [Concomitant]
     Active Substance: DICYCLOMINE HYDROCHLORIDE
     Indication: Irritable bowel syndrome
     Route: 048
     Dates: start: 20101013
  10. DICYCLOMINE [Concomitant]
     Active Substance: DICYCLOMINE HYDROCHLORIDE
     Indication: Colitis ulcerative
  11. ESTRADIOL [Concomitant]
     Active Substance: ESTRADIOL
     Indication: Hormone replacement therapy
     Route: 048
     Dates: start: 20101011
  12. FLONASE [Concomitant]
     Active Substance: FLUTICASONE PROPIONATE
     Indication: Multiple allergies
     Dates: start: 20111121
  13. GABAPENTIN [Concomitant]
     Active Substance: GABAPENTIN
     Indication: Fibromyalgia
     Dates: start: 20120306
  14. LOSARTAN POTASSIUM [Concomitant]
     Active Substance: LOSARTAN POTASSIUM
     Indication: Hypertension
     Dates: start: 20200915, end: 20210908
  15. LOVASTATIN [Concomitant]
     Active Substance: LOVASTATIN
     Indication: Blood cholesterol abnormal
     Route: 048
     Dates: start: 20101020
  16. MESALAMINE [Concomitant]
     Active Substance: MESALAMINE
     Indication: Colitis ulcerative
     Dates: start: 20170821
  17. SINGULAIR [Concomitant]
     Active Substance: MONTELUKAST SODIUM
     Indication: Multiple allergies
     Dates: start: 20130628
  18. OMEPRAZOLE [Concomitant]
     Active Substance: OMEPRAZOLE
     Indication: Gastrooesophageal reflux disease
  19. OXYBUTYNIN CHLORIDE [Concomitant]
     Active Substance: OXYBUTYNIN CHLORIDE
     Indication: Bladder disorder
     Dates: start: 20101023
  20. PROGESTERONE [Concomitant]
     Active Substance: PROGESTERONE
     Indication: Hormone replacement therapy
     Dates: start: 20130110
  21. SEROQUEL [Concomitant]
     Active Substance: QUETIAPINE FUMARATE
     Indication: Anxiety
     Dates: start: 20181121
  22. SEROQUEL [Concomitant]
     Active Substance: QUETIAPINE FUMARATE
     Indication: Pain
  23. TOPAMAX [Concomitant]
     Active Substance: TOPIRAMATE
     Indication: Neuralgia
     Dates: start: 20191021
  24. TOPAMAX [Concomitant]
     Active Substance: TOPIRAMATE
     Indication: Headache
  25. DESYREL [Concomitant]
     Active Substance: TRAZODONE HYDROCHLORIDE
     Indication: Sedative therapy
     Dates: start: 20180714
  26. DESYREL [Concomitant]
     Active Substance: TRAZODONE HYDROCHLORIDE
     Indication: Fibromyalgia
  27. REVIA [Concomitant]
     Active Substance: NALTREXONE HYDROCHLORIDE
     Indication: Pain
     Dates: start: 202006
  28. AMITRIPTYLINE [Concomitant]
     Active Substance: AMITRIPTYLINE
     Indication: Fibromyalgia
     Route: 048
     Dates: start: 20101014, end: 20170327
  29. BENICAR HCT [Concomitant]
     Active Substance: HYDROCHLOROTHIAZIDE\OLMESARTAN MEDOXOMIL
     Indication: Colitis ulcerative
     Dates: start: 20110216, end: 20140915
  30. CARISOPRODOL [Concomitant]
     Active Substance: CARISOPRODOL
     Indication: Muscle relaxant therapy
     Route: 048
     Dates: start: 1992, end: 20180116
  31. NORETHINDRONE [Concomitant]
     Active Substance: NORETHINDRONE
     Indication: Hormone level abnormal
     Dates: start: 20101001, end: 20180309
  32. POLYETHYLENE GLYCOL 3350 [Concomitant]
     Active Substance: POLYETHYLENE GLYCOL 3350
     Indication: Constipation
     Dates: start: 20120106, end: 20161130
  33. AMLODIPINE BESYLATE [Concomitant]
     Active Substance: AMLODIPINE BESYLATE
     Indication: Hypertension
     Route: 065
     Dates: start: 20180226, end: 20190808
  34. INSULIN NOS [Concomitant]
     Active Substance: INSULIN NOS
     Indication: Immune tolerance induction
     Route: 065
     Dates: start: 20180810, end: 20201116
  35. BUSPIRONE HYDROCHLORIDE [Concomitant]
     Active Substance: BUSPIRONE HYDROCHLORIDE
     Indication: Pain
     Dosage: 5/10 MG
     Route: 048
  36. ZYRTEC [Concomitant]
     Active Substance: CETIRIZINE HYDROCHLORIDE
     Indication: Multiple allergies
     Dosage: 5-120 MG
     Route: 065
     Dates: start: 20181217, end: 20200628
  37. FLUCONAZOLE [Concomitant]
     Active Substance: FLUCONAZOLE
     Indication: Fungal infection
     Route: 048
     Dates: start: 20120510, end: 20210506
  38. HYDROXYZINE HYDROCHLORIDE [Concomitant]
     Active Substance: HYDROXYZINE HYDROCHLORIDE
     Indication: Multiple allergies
     Route: 065
     Dates: start: 20120727, end: 20130316
  39. LEVOFLOXACIN [Concomitant]
     Active Substance: LEVOFLOXACIN
     Indication: Antibiotic therapy
     Dosage: 500/750 MG
     Route: 048
     Dates: start: 20120111, end: 20210406
  40. LEVOTHYROXINE [Concomitant]
     Active Substance: LEVOTHYROXINE
     Indication: Hypothyroidism
     Route: 048
     Dates: start: 20110110, end: 20111111
  41. LINZESS [Concomitant]
     Active Substance: LINACLOTIDE
     Indication: Irritable bowel syndrome
     Route: 048
     Dates: start: 20140821, end: 201501
  42. MOBIC [Concomitant]
     Active Substance: MELOXICAM
     Indication: Antiinflammatory therapy
     Route: 048
     Dates: start: 20140822, end: 20141101
  43. METHOCARBAMOL [Concomitant]
     Active Substance: METHOCARBAMOL
     Indication: Muscle relaxant therapy
     Dosage: 500/750 MG
     Route: 065
     Dates: start: 20180124, end: 20201125
  44. MUPIROCIN [Concomitant]
     Active Substance: MUPIROCIN
     Indication: Nasal dryness
     Route: 061
     Dates: start: 20120716, end: 20180225
  45. OLOPATADINE [Concomitant]
     Active Substance: OLOPATADINE
     Indication: Multiple allergies
     Route: 065
     Dates: start: 20150428, end: 20170821
  46. ZOFRAN [Concomitant]
     Active Substance: ONDANSETRON HYDROCHLORIDE
     Indication: Nausea
     Route: 048
     Dates: start: 20180503
  47. PREMARIN [Concomitant]
     Active Substance: ESTROGENS, CONJUGATED
     Indication: Hormone replacement therapy
     Route: 067
     Dates: start: 20161227, end: 20170330
  48. PREVIDENT [Concomitant]
     Active Substance: SODIUM FLUORIDE
     Indication: Hyperaesthesia teeth
     Dosage: 5000 PLUS
     Route: 048
     Dates: start: 20180606
  49. PROMETHAZINE [Concomitant]
     Active Substance: PROMETHAZINE HYDROCHLORIDE
     Indication: Cough
     Route: 065
     Dates: start: 20181102
  50. PROMETHAZINE VC W/CODEINE [CODEINE PHOSPHATE;PHENYLEPHRINE HYDROCHLORI [Concomitant]
     Indication: Cough
     Route: 048
     Dates: start: 20110711, end: 20180410
  51. PROVENTIL HFA [SALBUTAMOL] [Concomitant]
     Indication: Multiple allergies
     Route: 045
     Dates: start: 20131212, end: 20141101
  52. TRAMADOL [Concomitant]
     Active Substance: TRAMADOL
     Indication: Arthralgia
     Route: 048
     Dates: start: 20150623, end: 20210601
  53. TRAMADOL [Concomitant]
     Active Substance: TRAMADOL
     Indication: Neck pain
  54. NALTREXONE [Concomitant]
     Active Substance: NALTREXONE
     Indication: Pain
     Route: 065
     Dates: start: 202006
  55. HYDROCHLOROTHIAZIDE\LOSARTAN [Concomitant]
     Active Substance: HYDROCHLOROTHIAZIDE\LOSARTAN
     Indication: Hypertension
     Dosage: 50-12.5 MG
     Route: 065
     Dates: start: 20140822, end: 20201202
  56. AVELOX [Concomitant]
     Active Substance: MOXIFLOXACIN HYDROCHLORIDE
     Indication: Infection
     Route: 048
     Dates: start: 20040211, end: 20070205
  57. ZITHROMAX [Concomitant]
     Active Substance: AZITHROMYCIN DIHYDRATE
     Indication: Infection
     Dosage: 250
     Route: 048
     Dates: start: 20051101, end: 20071204
  58. CEFUROXIME [Concomitant]
     Active Substance: CEFUROXIME
     Indication: Infection
     Route: 048
  59. TYMLOS [Concomitant]
     Active Substance: ABALOPARATIDE
     Indication: Osteoporosis prophylaxis

REACTIONS (2)
  - Dry age-related macular degeneration [Unknown]
  - Maculopathy [Not Recovered/Not Resolved]

NARRATIVE: CASE EVENT DATE: 20120301
